FAERS Safety Report 11440334 (Version 1)
Quarter: 2015Q3

REPORT INFORMATION
  Report Type: Spontaneous
  Country: US (occurrence: US)
  Receive Date: 20150901
  Receipt Date: 20150901
  Transmission Date: 20151125
  Serious: No
  Sender: FDA-Public Use
  Company Number: US-ROCHE-1090120

PATIENT
  Sex: Male

DRUGS (3)
  1. BOCEPREVIR [Suspect]
     Active Substance: BOCEPREVIR
     Indication: HEPATITIS C
     Route: 048
     Dates: start: 20120822
  2. PEGASYS [Suspect]
     Active Substance: PEGINTERFERON ALFA-2A
     Indication: HEPATITIS C
     Route: 058
     Dates: start: 20120718
  3. RIBASPHERE RIBAPAK [Suspect]
     Active Substance: RIBAVIRIN
     Indication: HEPATITIS C
     Route: 048
     Dates: start: 20120718

REACTIONS (7)
  - Dysgeusia [Unknown]
  - Aphthous ulcer [Unknown]
  - Injection site erythema [Unknown]
  - Injection site bruising [Unknown]
  - Weight decreased [Unknown]
  - Nervousness [Unknown]
  - Dry mouth [Unknown]
